FAERS Safety Report 10626033 (Version 1)
Quarter: 2014Q4

REPORT INFORMATION
  Report Type: Spontaneous
  Country: US (occurrence: None)
  Receive Date: 20141121
  Receipt Date: 20141121
  Transmission Date: 20150529
  Serious: No
  Sender: FDA-Public Use
  Company Number: 163-10004-14082443

PATIENT
  Age: 51 Year
  Sex: Male

DRUGS (4)
  1. OTEZLA [Suspect]
     Active Substance: APREMILAST
     Indication: PSORIATIC ARTHROPATHY
     Route: 048
     Dates: start: 20140609
  2. NABUMETONE. [Concomitant]
     Active Substance: NABUMETONE
  3. SULFASALAZINE. [Concomitant]
     Active Substance: SULFASALAZINE
  4. LYRICA [Concomitant]
     Active Substance: PREGABALIN

REACTIONS (2)
  - Nausea [None]
  - Dyspepsia [None]
